FAERS Safety Report 18223518 (Version 1)
Quarter: 2020Q3

REPORT INFORMATION
  Report Type: Spontaneous
  Country: FR (occurrence: FR)
  Receive Date: 20200902
  Receipt Date: 20200902
  Transmission Date: 20201103
  Serious: Yes (Death, Life-Threatening, Hospitalization)
  Sender: FDA-Public Use
  Company Number: FR-JNJFOC-20200833600

PATIENT
  Age: 34 Year
  Sex: Male

DRUGS (3)
  1. DARZALEX [Suspect]
     Active Substance: DARATUMUMAB
     Indication: CARDIAC AMYLOIDOSIS
     Route: 041
     Dates: start: 20200723, end: 20200723
  2. MONTELUKAST SODIQUE [Concomitant]
     Active Substance: MONTELUKAST SODIUM
     Indication: CHEMOTHERAPY SIDE EFFECT PROPHYLAXIS
     Dosage: ; IN TOTAL
     Route: 041
     Dates: start: 20200723, end: 20200723
  3. CETIRIZINE [Concomitant]
     Active Substance: CETIRIZINE HYDROCHLORIDE
     Indication: CHEMOTHERAPY SIDE EFFECT PROPHYLAXIS
     Dosage: ; IN TOTAL
     Route: 041
     Dates: start: 20200723, end: 20200723

REACTIONS (5)
  - Infusion related reaction [Recovered/Resolved]
  - Cardiac arrest [Recovered/Resolved]
  - Off label use [Unknown]
  - Cardiac amyloidosis [Fatal]
  - Product use in unapproved indication [Unknown]

NARRATIVE: CASE EVENT DATE: 20200723
